FAERS Safety Report 21694325 (Version 1)
Quarter: 2022Q4

REPORT INFORMATION
  Report Type: Spontaneous
  Country: CN (occurrence: CN)
  Receive Date: 20221207
  Receipt Date: 20221207
  Transmission Date: 20230112
  Serious: Yes (Other)
  Sender: FDA-Public Use
  Company Number: CN-009507513-2211CHN009733

PATIENT
  Age: 2 Year
  Sex: Female

DRUGS (1)
  1. CILASTATIN SODIUM\IMIPENEM [Suspect]
     Active Substance: CILASTATIN SODIUM\IMIPENEM
     Indication: Infection
     Dosage: 0.1 G, ONCE A DAY
     Route: 041
     Dates: start: 20221106, end: 20221106

REACTIONS (4)
  - Dysphoria [Recovering/Resolving]
  - Pallor [Recovering/Resolving]
  - Heart rate abnormal [Unknown]
  - Respiratory disorder [Unknown]

NARRATIVE: CASE EVENT DATE: 20220101
